FAERS Safety Report 23508521 (Version 3)
Quarter: 2024Q2

REPORT INFORMATION
  Report Type: Spontaneous
  Country: BE (occurrence: BE)
  Receive Date: 20240209
  Receipt Date: 20240613
  Transmission Date: 20240715
  Serious: Yes (Hospitalization, Other)
  Sender: FDA-Public Use
  Company Number: BE-ROCHE-2882515

PATIENT
  Age: 73 Year
  Sex: Female
  Weight: 79.1 kg

DRUGS (126)
  1. ATEZOLIZUMAB [Suspect]
     Active Substance: ATEZOLIZUMAB
     Indication: Small cell lung cancer extensive stage
     Dosage: 1200 MG, (RECEIVED BEFORE SIGNING THE INFORMED CONSENT)
     Route: 042
     Dates: start: 20210715
  2. ATEZOLIZUMAB [Suspect]
     Active Substance: ATEZOLIZUMAB
     Dosage: 1200 MG, (VISIT 1)
     Route: 042
     Dates: start: 20210804
  3. ATEZOLIZUMAB [Suspect]
     Active Substance: ATEZOLIZUMAB
     Indication: Non-small cell lung cancer
     Dosage: UNK
     Route: 041
  4. CARBOPLATIN [Suspect]
     Active Substance: CARBOPLATIN
     Dosage: 351 MG
     Route: 065
     Dates: start: 20210804
  5. CARBOPLATIN [Suspect]
     Active Substance: CARBOPLATIN
     Indication: Small cell lung cancer extensive stage
     Dosage: 375 MG
     Route: 065
     Dates: start: 20210715
  6. CARBOPLATIN [Suspect]
     Active Substance: CARBOPLATIN
     Indication: Non-small cell lung cancer
     Dosage: UNK
     Route: 065
  7. ETOPOSIDE [Suspect]
     Active Substance: ETOPOSIDE
     Indication: Small cell lung cancer extensive stage
     Dosage: 194 MG
     Route: 042
     Dates: start: 20210715
  8. ETOPOSIDE [Suspect]
     Active Substance: ETOPOSIDE
     Dosage: 196 MG
     Route: 042
     Dates: start: 20210804
  9. ETOPOSIDE [Suspect]
     Active Substance: ETOPOSIDE
     Indication: Non-small cell lung cancer
     Dosage: UNK
     Route: 048
  10. AKYNZEO [Concomitant]
     Indication: Product used for unknown indication
     Dosage: UNK, QMO
     Route: 065
     Dates: start: 20210715, end: 20210915
  11. AKYNZEO [Concomitant]
     Dosage: UNK
     Route: 065
     Dates: start: 20210715, end: 20210915
  12. AKYNZEO [Concomitant]
     Route: 065
     Dates: start: 20210715, end: 20210915
  13. ENALAPRIL MALEATE [Concomitant]
     Active Substance: ENALAPRIL MALEATE
     Indication: Product used for unknown indication
     Route: 065
     Dates: start: 20230330
  14. ENALAPRIL MALEATE [Concomitant]
     Active Substance: ENALAPRIL MALEATE
     Route: 065
     Dates: start: 20230330
  15. ENALAPRIL MALEATE [Concomitant]
     Active Substance: ENALAPRIL MALEATE
     Route: 065
     Dates: start: 20230330
  16. ENALAPRIL MALEATE [Concomitant]
     Active Substance: ENALAPRIL MALEATE
     Route: 065
     Dates: start: 20230330
  17. ALDACTONE [Concomitant]
     Active Substance: SPIRONOLACTONE
     Indication: Product used for unknown indication
     Dosage: UNK UNK, QD
     Route: 065
     Dates: start: 20230330
  18. AMOCLANE [Concomitant]
     Indication: Product used for unknown indication
     Dosage: QD
     Route: 065
     Dates: start: 20210728
  19. AMOCLANE [Concomitant]
     Dosage: QD
     Route: 065
     Dates: start: 20210728
  20. AMOCLANE [Concomitant]
     Dosage: QD
     Route: 065
     Dates: start: 20210728
  21. ASPIRIN [Concomitant]
     Active Substance: ASPIRIN
     Indication: Product used for unknown indication
     Dosage: QD
     Route: 065
     Dates: start: 20210927, end: 20210927
  22. ASPIRIN [Concomitant]
     Active Substance: ASPIRIN
     Dosage: QD
     Route: 065
     Dates: start: 20210927, end: 20210927
  23. ASPIRIN [Concomitant]
     Active Substance: ASPIRIN
     Dosage: QD
     Route: 065
     Dates: start: 20210927, end: 20210927
  24. AVELOX [Concomitant]
     Active Substance: MOXIFLOXACIN HYDROCHLORIDE
     Dosage: QD
     Route: 065
     Dates: start: 20211117, end: 20211121
  25. AVELOX [Concomitant]
     Active Substance: MOXIFLOXACIN HYDROCHLORIDE
     Dosage: QD
     Route: 065
     Dates: start: 20211117, end: 20211121
  26. AVELOX [Concomitant]
     Active Substance: MOXIFLOXACIN HYDROCHLORIDE
     Indication: Product used for unknown indication
     Dosage: UNK UNK, QD
     Route: 065
     Dates: start: 20211117, end: 20211121
  27. BILASTINE [Concomitant]
     Active Substance: BILASTINE
     Dosage: QD
     Route: 065
     Dates: start: 202110, end: 202306
  28. BILASTINE [Concomitant]
     Active Substance: BILASTINE
     Dosage: QD
     Route: 065
     Dates: start: 202110, end: 202306
  29. BILASTINE [Concomitant]
     Active Substance: BILASTINE
     Dosage: UNK UNK, QD
     Route: 065
     Dates: start: 202110, end: 202306
  30. BILASTINE [Concomitant]
     Active Substance: BILASTINE
     Indication: Prophylaxis
     Dosage: UNK
     Route: 065
     Dates: start: 20210916
  31. BISOPROLOL [Concomitant]
     Active Substance: BISOPROLOL\BISOPROLOL FUMARATE
     Dosage: QD
     Route: 065
  32. BISOPROLOL [Concomitant]
     Active Substance: BISOPROLOL\BISOPROLOL FUMARATE
     Dosage: QD
     Route: 065
  33. BISOPROLOL [Concomitant]
     Active Substance: BISOPROLOL\BISOPROLOL FUMARATE
     Indication: Product used for unknown indication
     Dosage: UNK, QD
     Route: 065
  34. CARVEDILOL [Concomitant]
     Active Substance: CARVEDILOL
     Dosage: UNK
     Route: 065
     Dates: start: 20230330
  35. CARVEDILOL [Concomitant]
     Active Substance: CARVEDILOL
     Dosage: UNK
     Route: 065
     Dates: start: 20230330
  36. CARVEDILOL [Concomitant]
     Active Substance: CARVEDILOL
     Dosage: UNK
     Route: 065
     Dates: start: 20230330
  37. CARVEDILOL [Concomitant]
     Active Substance: CARVEDILOL
     Dosage: UNK
     Route: 065
     Dates: start: 20230330
  38. CARVEDILOL [Concomitant]
     Active Substance: CARVEDILOL
     Dosage: UNK
     Route: 065
     Dates: start: 20230330
  39. CARVEDILOL [Concomitant]
     Active Substance: CARVEDILOL
     Dosage: UNK
     Route: 065
     Dates: start: 20230330
  40. CARVEDILOL [Concomitant]
     Active Substance: CARVEDILOL
     Dosage: UNK
     Route: 065
     Dates: start: 20230330
  41. CARVEDILOL [Concomitant]
     Active Substance: CARVEDILOL
     Dosage: UNK
     Route: 065
     Dates: start: 20230330
  42. CARVEDILOL [Concomitant]
     Active Substance: CARVEDILOL
     Indication: Product used for unknown indication
     Dosage: UNK, (0.5 DAY)
     Route: 065
     Dates: start: 20230330
  43. CARVEDILOL [Concomitant]
     Active Substance: CARVEDILOL
     Route: 065
     Dates: start: 20230330
  44. 3M CAVILON ANTIFUNGAL [Concomitant]
     Active Substance: MICONAZOLE NITRATE
     Dosage: QD
     Route: 065
     Dates: start: 20210916, end: 202109
  45. 3M CAVILON ANTIFUNGAL [Concomitant]
     Active Substance: MICONAZOLE NITRATE
     Dosage: QD
     Route: 065
     Dates: start: 20210916, end: 202109
  46. 3M CAVILON ANTIFUNGAL [Concomitant]
     Active Substance: MICONAZOLE NITRATE
     Dosage: QD
     Route: 065
     Dates: start: 20210916, end: 202109
  47. 3M CAVILON ANTIFUNGAL [Concomitant]
     Active Substance: MICONAZOLE NITRATE
     Dosage: QD
     Route: 065
     Dates: start: 20210916, end: 202109
  48. 3M CAVILON ANTIFUNGAL [Concomitant]
     Active Substance: MICONAZOLE NITRATE
     Dosage: QD
     Route: 065
     Dates: start: 20210916, end: 202109
  49. 3M CAVILON ANTIFUNGAL [Concomitant]
     Active Substance: MICONAZOLE NITRATE
     Dosage: QD
     Route: 065
     Dates: start: 20210916, end: 202109
  50. 3M CAVILON ANTIFUNGAL [Concomitant]
     Active Substance: MICONAZOLE NITRATE
     Dosage: QD
     Route: 065
     Dates: start: 20210916, end: 202109
  51. 3M CAVILON ANTIFUNGAL [Concomitant]
     Active Substance: MICONAZOLE NITRATE
     Dosage: QD
     Route: 065
     Dates: start: 20210916, end: 202109
  52. 3M CAVILON ANTIFUNGAL [Concomitant]
     Active Substance: MICONAZOLE NITRATE
     Dosage: QD
     Route: 065
     Dates: start: 20210916, end: 202109
  53. 3M CAVILON ANTIFUNGAL [Concomitant]
     Active Substance: MICONAZOLE NITRATE
     Indication: Product used for unknown indication
     Dosage: UNK, QD
     Route: 065
     Dates: start: 20210916, end: 202109
  54. CEFTAZIDIME [Concomitant]
     Active Substance: CEFTAZIDIME
     Dosage: QD
     Route: 065
     Dates: start: 20210726, end: 20210728
  55. CEFTAZIDIME [Concomitant]
     Active Substance: CEFTAZIDIME
     Dosage: QD
     Route: 065
     Dates: start: 20210726, end: 20210728
  56. CEFTAZIDIME [Concomitant]
     Active Substance: CEFTAZIDIME
     Indication: Product used for unknown indication
     Dosage: UNK, QD
     Route: 065
     Dates: start: 20210726, end: 20210728
  57. SODIUM CHLORIDE [Concomitant]
     Active Substance: SODIUM CHLORIDE
     Indication: Product used for unknown indication
     Dosage: QD
     Route: 065
     Dates: start: 20210729, end: 20210730
  58. ENALAPRIL [Concomitant]
     Active Substance: ENALAPRIL
     Dosage: UNK
     Route: 065
     Dates: start: 20230330
  59. ENALAPRIL [Concomitant]
     Active Substance: ENALAPRIL
     Indication: Product used for unknown indication
     Dosage: UNK, (0.5 DAY)
     Route: 065
     Dates: start: 20230330
  60. ENALAPRIL [Concomitant]
     Active Substance: ENALAPRIL
     Route: 065
     Dates: start: 20230330
  61. FUROSEMIDE [Concomitant]
     Active Substance: FUROSEMIDE
     Dosage: QD
     Route: 065
  62. FUROSEMIDE [Concomitant]
     Active Substance: FUROSEMIDE
     Dosage: QD
     Route: 065
  63. FUROSEMIDE [Concomitant]
     Active Substance: FUROSEMIDE
     Indication: Product used for unknown indication
     Dosage: UNK UNK, QD
     Route: 065
  64. CEFTAZIDIME [Concomitant]
     Active Substance: CEFTAZIDIME
     Indication: Product used for unknown indication
     Dosage: QD
     Route: 065
     Dates: start: 20210726, end: 20210728
  65. BECLOMETHASONE DIPROPIONATE\FORMOTEROL FUMARATE [Concomitant]
     Active Substance: BECLOMETHASONE DIPROPIONATE\FORMOTEROL FUMARATE
     Dosage: UNK
     Route: 065
     Dates: start: 20210725
  66. BECLOMETHASONE DIPROPIONATE\FORMOTEROL FUMARATE [Concomitant]
     Active Substance: BECLOMETHASONE DIPROPIONATE\FORMOTEROL FUMARATE
     Dosage: UNK
     Route: 065
     Dates: start: 20210725
  67. BECLOMETHASONE DIPROPIONATE\FORMOTEROL FUMARATE [Concomitant]
     Active Substance: BECLOMETHASONE DIPROPIONATE\FORMOTEROL FUMARATE
     Dosage: UNK, 2X/DAY
     Route: 065
     Dates: start: 20210715
  68. BECLOMETHASONE DIPROPIONATE\FORMOTEROL FUMARATE [Concomitant]
     Active Substance: BECLOMETHASONE DIPROPIONATE\FORMOTEROL FUMARATE
     Indication: Product used for unknown indication
     Dosage: UNK,0.5 DAY
     Route: 065
  69. BECLOMETHASONE DIPROPIONATE\FORMOTEROL FUMARATE [Concomitant]
     Active Substance: BECLOMETHASONE DIPROPIONATE\FORMOTEROL FUMARATE
     Route: 065
     Dates: start: 20210725
  70. POTASSIUM CHLORIDE [Concomitant]
     Active Substance: POTASSIUM CHLORIDE
     Indication: Product used for unknown indication
     Dosage: QD
     Route: 065
     Dates: start: 20210729, end: 20210730
  71. LASIX [Concomitant]
     Active Substance: FUROSEMIDE
     Indication: Product used for unknown indication
     Dosage: QD
     Route: 065
  72. POLYETHYLENE GLYCOL 3350\POTASSIUM CHLORIDE\SODIUM BICARBONATE\SODIUM [Concomitant]
     Active Substance: POLYETHYLENE GLYCOL 3350\POTASSIUM CHLORIDE\SODIUM BICARBONATE\SODIUM CHLORIDE
     Indication: Product used for unknown indication
     Dosage: UNK, QD
     Route: 065
  73. ALIZAPRIDE HYDROCHLORIDE [Concomitant]
     Active Substance: ALIZAPRIDE HYDROCHLORIDE
     Indication: Product used for unknown indication
     Dosage: UNK
     Route: 065
     Dates: start: 20210717, end: 20210717
  74. ALIZAPRIDE HYDROCHLORIDE [Concomitant]
     Active Substance: ALIZAPRIDE HYDROCHLORIDE
     Route: 065
     Dates: start: 20210717, end: 20210717
  75. ALIZAPRIDE HYDROCHLORIDE [Concomitant]
     Active Substance: ALIZAPRIDE HYDROCHLORIDE
     Route: 065
     Dates: start: 20210717, end: 20210717
  76. Magnecaps energy [Concomitant]
     Indication: Product used for unknown indication
     Dosage: QD
     Route: 065
     Dates: start: 20210716, end: 20210925
  77. MAGNESIUM [Concomitant]
     Active Substance: MAGNESIUM
     Dosage: QD
     Route: 065
     Dates: start: 20210716, end: 20210925
  78. MAGNESIUM [Concomitant]
     Active Substance: MAGNESIUM
     Dosage: QD
     Route: 065
     Dates: start: 20210716, end: 20210925
  79. MAGNESIUM [Concomitant]
     Active Substance: MAGNESIUM
     Indication: Product used for unknown indication
     Dosage: UNK, QD
     Route: 065
     Dates: start: 20210716, end: 20210925
  80. METHYLPREDNISOLONE [Concomitant]
     Active Substance: METHYLPREDNISOLONE
     Indication: Product used for unknown indication
     Dosage: UNK, MONTHLY
     Route: 065
     Dates: start: 20210715, end: 20210915
  81. NEULASTA [Concomitant]
     Active Substance: PEGFILGRASTIM
     Indication: Product used for unknown indication
     Dosage: UNK
     Route: 065
     Dates: start: 20210719, end: 20210917
  82. NEULASTA [Concomitant]
     Active Substance: PEGFILGRASTIM
     Dosage: UNK
     Route: 065
     Dates: start: 20210719, end: 20210917
  83. NEULASTA [Concomitant]
     Active Substance: PEGFILGRASTIM
     Route: 065
     Dates: start: 20210719, end: 20210917
  84. PERINDOPRIL [Concomitant]
     Active Substance: PERINDOPRIL
     Dosage: QD
     Route: 065
  85. PERINDOPRIL [Concomitant]
     Active Substance: PERINDOPRIL
     Dosage: QD
     Route: 065
  86. PERINDOPRIL [Concomitant]
     Active Substance: PERINDOPRIL
     Indication: Product used for unknown indication
     Dosage: UNK, QD
     Route: 065
  87. PLASMALYTE A [Concomitant]
     Dosage: QD
     Route: 065
     Dates: start: 20210726, end: 20210727
  88. PLASMALYTE A [Concomitant]
     Dosage: QD
     Route: 065
     Dates: start: 20210726, end: 20210727
  89. PLASMALYTE A [Concomitant]
     Dosage: QD
     Route: 065
     Dates: start: 20210726, end: 20210727
  90. PLASMALYTE A [Concomitant]
     Dosage: QD
     Route: 065
     Dates: start: 20210726, end: 20210727
  91. PLASMALYTE A [Concomitant]
     Dosage: QD
     Route: 065
     Dates: start: 20210726, end: 20210727
  92. PLASMALYTE A [Concomitant]
     Dosage: QD
     Route: 065
     Dates: start: 20210726, end: 20210727
  93. PLASMALYTE A [Concomitant]
     Dosage: QD
     Route: 065
     Dates: start: 20210726, end: 20210727
  94. PLASMALYTE A [Concomitant]
     Indication: Product used for unknown indication
     Dosage: UNK, QD
     Route: 065
     Dates: start: 20210726, end: 20210727
  95. POTASSIUM CHLORIDE [Concomitant]
     Active Substance: POTASSIUM CHLORIDE
     Dosage: QD
     Route: 065
     Dates: start: 20210729, end: 20210730
  96. POTASSIUM CHLORIDE [Concomitant]
     Active Substance: POTASSIUM CHLORIDE
     Dosage: QD
     Route: 065
     Dates: start: 20210729, end: 20210730
  97. POTASSIUM CHLORIDE [Concomitant]
     Active Substance: POTASSIUM CHLORIDE
     Indication: Product used for unknown indication
     Dosage: UNK, QD
     Route: 065
     Dates: start: 20210729, end: 20210730
  98. POTASSIUM CHLORIDE [Concomitant]
     Active Substance: POTASSIUM CHLORIDE
     Dosage: UNK
     Route: 065
     Dates: start: 20210716, end: 20210925
  99. PRAVASTATIN [Concomitant]
     Active Substance: PRAVASTATIN
     Indication: Product used for unknown indication
     Dosage: UNK UNK, QD
     Route: 065
  100. PERINDOPRIL [Concomitant]
     Active Substance: PERINDOPRIL
     Indication: Product used for unknown indication
     Dosage: QD
     Route: 065
  101. PERINDOPRIL [Concomitant]
     Active Substance: PERINDOPRIL
     Dosage: QD
     Route: 065
  102. PERINDOPRIL [Concomitant]
     Active Substance: PERINDOPRIL
     Dosage: QD
     Route: 065
  103. PERINDOPRIL [Concomitant]
     Active Substance: PERINDOPRIL
     Dosage: QD
     Route: 065
  104. SODIUM CHLORIDE [Concomitant]
     Active Substance: SODIUM CHLORIDE
     Dosage: QD
     Route: 065
     Dates: start: 20210726, end: 20210727
  105. SODIUM CHLORIDE [Concomitant]
     Active Substance: SODIUM CHLORIDE
     Dosage: QD
     Route: 065
  106. SODIUM CHLORIDE [Concomitant]
     Active Substance: SODIUM CHLORIDE
     Indication: Product used for unknown indication
     Dosage: UNK, QD
     Route: 065
     Dates: start: 20210729, end: 20210730
  107. LEVOFLOXACIN [Concomitant]
     Active Substance: LEVOFLOXACIN
     Dosage: QD
     Route: 065
     Dates: start: 20210723, end: 20210726
  108. LEVOFLOXACIN [Concomitant]
     Active Substance: LEVOFLOXACIN
     Dosage: QD
     Route: 065
     Dates: start: 20210723, end: 20210726
  109. LEVOFLOXACIN [Concomitant]
     Active Substance: LEVOFLOXACIN
     Indication: Product used for unknown indication
     Dosage: UNK, QD
     Route: 065
     Dates: start: 20210723, end: 20210726
  110. ULTRA K [Concomitant]
     Dosage: QD
     Route: 065
     Dates: start: 20210728
  111. ULTRA K [Concomitant]
     Dosage: QD
     Route: 065
     Dates: start: 20210728
  112. ULTRA K [Concomitant]
     Indication: Product used for unknown indication
     Dosage: UNK, QD
     Route: 065
     Dates: start: 20210728
  113. CHOLECALCIFEROL [Concomitant]
     Active Substance: CHOLECALCIFEROL
     Dosage: QD
     Route: 065
     Dates: start: 20210716
  114. CHOLECALCIFEROL [Concomitant]
     Active Substance: CHOLECALCIFEROL
     Dosage: QD
     Route: 065
     Dates: start: 20210716
  115. CHOLECALCIFEROL [Concomitant]
     Active Substance: CHOLECALCIFEROL
     Dosage: QD
     Route: 065
     Dates: start: 20210716
  116. CHOLECALCIFEROL [Concomitant]
     Active Substance: CHOLECALCIFEROL
     Dosage: QD
     Route: 065
     Dates: start: 20210716
  117. CHOLECALCIFEROL [Concomitant]
     Active Substance: CHOLECALCIFEROL
     Dosage: QD
     Route: 065
     Dates: start: 20210716
  118. CHOLECALCIFEROL [Concomitant]
     Active Substance: CHOLECALCIFEROL
     Dosage: QD
     Route: 065
     Dates: start: 20210716
  119. CHOLECALCIFEROL [Concomitant]
     Active Substance: CHOLECALCIFEROL
     Dosage: QD
     Route: 065
     Dates: start: 20210716
  120. CHOLECALCIFEROL [Concomitant]
     Active Substance: CHOLECALCIFEROL
     Dosage: QD
     Route: 065
     Dates: start: 20210716
  121. CHOLECALCIFEROL [Concomitant]
     Active Substance: CHOLECALCIFEROL
     Dosage: QD
     Route: 065
     Dates: start: 20210716
  122. CHOLECALCIFEROL [Concomitant]
     Active Substance: CHOLECALCIFEROL
     Indication: Product used for unknown indication
     Dosage: UNK, QD
     Route: 065
  123. CHOLECALCIFEROL [Concomitant]
     Active Substance: CHOLECALCIFEROL
     Dosage: UNK, QD
     Route: 065
     Dates: start: 20210716
  124. ZOCOR [Concomitant]
     Active Substance: SIMVASTATIN
     Dosage: QD
     Route: 065
     Dates: start: 20210804
  125. ZOCOR [Concomitant]
     Active Substance: SIMVASTATIN
     Dosage: QD
     Route: 065
     Dates: start: 20210804
  126. ZOCOR [Concomitant]
     Active Substance: SIMVASTATIN
     Indication: Product used for unknown indication
     Dosage: UNK UNK, QD
     Route: 065
     Dates: start: 20210804

REACTIONS (14)
  - Neutropenia [Recovered/Resolved]
  - Inflammation [Recovered/Resolved]
  - Neutropenia [Recovered/Resolved]
  - Hypokalaemia [Recovered/Resolved]
  - Hypokalaemia [Recovered/Resolved]
  - Acute kidney injury [Recovered/Resolved]
  - Haematoma [Recovered/Resolved]
  - Hypothyroidism [Recovered/Resolved]
  - Fall [Unknown]
  - C-reactive protein increased [Recovered/Resolved]
  - Diarrhoea [Recovered/Resolved]
  - Oedema peripheral [Recovered/Resolved]
  - C-reactive protein increased [Recovered/Resolved]
  - Decreased appetite [Not Recovered/Not Resolved]

NARRATIVE: CASE EVENT DATE: 20210717
